FAERS Safety Report 8514723-6 (Version None)
Quarter: 2012Q3

REPORT INFORMATION
  Report Type: 
  Country: None (occurrence: None)
  Receive Date: 20120717
  Receipt Date: 20111021
  Transmission Date: 20120928
  Serious: No
  Sender: FDA-Public Use
  Company Number: US-COVIDIEN/TYCO HEALTHCARE/MALLINCKRODT-T201102424

PATIENT
  Sex: Male
  Weight: 77.098 kg

DRUGS (4)
  1. MORPHINE [Suspect]
     Indication: BACK PAIN
     Dosage: 60 MG, BID
     Route: 048
  2. ATENOLOL [Concomitant]
     Indication: HYPERTENSION
     Dosage: UNK
  3. ALLOPURINOL [Concomitant]
     Indication: GOUT
     Dosage: UNK
  4. NORVASC [Concomitant]
     Indication: HYPERTENSION
     Dosage: UNK

REACTIONS (5)
  - ALOPECIA [None]
  - SKIN DISORDER [None]
  - PRURITUS GENERALISED [None]
  - HYPERHIDROSIS [None]
  - RASH [None]
